FAERS Safety Report 18379001 (Version 4)
Quarter: 2020Q4

REPORT INFORMATION
  Report Type: Spontaneous
  Country: JP (occurrence: JP)
  Receive Date: 20201013
  Receipt Date: 20201116
  Transmission Date: 20210114
  Serious: Yes (Life-Threatening, Hospitalization)
  Sender: FDA-Public Use
  Company Number: JP-ROCHE-2690822

PATIENT
  Age: 66 Year
  Sex: Male
  Weight: 50 kg

DRUGS (7)
  1. VOGLIBOSE OD [Concomitant]
     Active Substance: VOGLIBOSE
     Dosage: DOSAGE UNKNOWN
     Route: 048
  2. TRESIBA [Concomitant]
     Active Substance: INSULIN DEGLUDEC
     Dosage: DOSAGE UNKNOWN
     Route: 065
  3. E KEPPRA [Concomitant]
     Active Substance: LEVETIRACETAM
     Dosage: DOSAGE UNKNOWN
     Route: 048
  4. HEMLIBRA [Suspect]
     Active Substance: EMICIZUMAB-KXWH
     Indication: HAEMOPHILIA A WITH ANTI FACTOR VIII
     Dosage: LOADING DOSE
     Route: 058
     Dates: start: 20200803
  5. HEMLIBRA [Suspect]
     Active Substance: EMICIZUMAB-KXWH
     Dosage: MAINTENANCE DOSE
     Route: 058
     Dates: start: 20200831
  6. NOVORAPID [Concomitant]
     Active Substance: INSULIN ASPART
     Dosage: DOSAGE UNKNOWN
     Route: 065
  7. VICTOZA [Concomitant]
     Active Substance: LIRAGLUTIDE
     Dosage: DOSAGE UNKNOWN
     Route: 058

REACTIONS (5)
  - Platelet count decreased [Recovered/Resolved]
  - Haemobilia [Recovering/Resolving]
  - Activated partial thromboplastin time prolonged [Recovered/Resolved]
  - Cholangitis [Unknown]
  - Bile duct stone [Recovered/Resolved]

NARRATIVE: CASE EVENT DATE: 202009
